FAERS Safety Report 15950005 (Version 1)
Quarter: 2019Q1

REPORT INFORMATION
  Report Type: Spontaneous
  Country: IT (occurrence: IT)
  Receive Date: 20190211
  Receipt Date: 20190211
  Transmission Date: 20190417
  Serious: Yes (Other)
  Sender: FDA-Public Use
  Company Number: PHHY2019IT030207

PATIENT
  Age: 25 Year
  Sex: Male

DRUGS (2)
  1. AMOXICILLIN+CLAVULANIC ACID [Suspect]
     Active Substance: AMOXICILLIN\CLAVULANIC ACID
     Indication: NASOPHARYNGITIS
     Dosage: 2 DF, UNK (TOTAL)
     Route: 048
     Dates: start: 20190116, end: 20190116
  2. NIMESULIDE [Suspect]
     Active Substance: NIMESULIDE
     Indication: NASOPHARYNGITIS
     Dosage: 1 DF, UNK (TOTAL)
     Route: 048
     Dates: start: 20190116, end: 20190116

REACTIONS (2)
  - Rash [Recovered/Resolved]
  - Pruritus [Recovered/Resolved]

NARRATIVE: CASE EVENT DATE: 20190116
